FAERS Safety Report 7076604-7 (Version None)
Quarter: 2010Q4

REPORT INFORMATION
  Report Type: 
  Country: None (occurrence: None)
  Receive Date: 20101101
  Receipt Date: 20101022
  Transmission Date: 20110411
  Serious: Yes (Other)
  Sender: FDA-Public Use
  Company Number: US-PFIZER INC-2010135570

PATIENT
  Sex: Female
  Weight: 54 kg

DRUGS (4)
  1. CHANTIX [Suspect]
     Indication: SMOKING CESSATION THERAPY
     Dosage: 1 MG, 2X/DAY
     Route: 048
     Dates: start: 20100801
  2. CYMBALTA [Concomitant]
     Dosage: 60 MG, UNK
  3. RISPERDAL [Concomitant]
     Dosage: 3 MG
  4. LORAZEPAM [Concomitant]
     Dosage: 1 MG, 3X/DAY

REACTIONS (2)
  - OBSESSIVE-COMPULSIVE DISORDER [None]
  - PARANOIA [None]
